FAERS Safety Report 18767219 (Version 1)
Quarter: 2021Q1

REPORT INFORMATION
  Report Type: Spontaneous
  Country: US (occurrence: US)
  Receive Date: 20210121
  Receipt Date: 20210121
  Transmission Date: 20210419
  Serious: Yes (Hospitalization)
  Sender: FDA-Public Use
  Company Number: None

PATIENT
  Age: 62 Year
  Sex: Female
  Weight: 59.85 kg

DRUGS (2)
  1. BAMLANIVIMAB. [Concomitant]
     Active Substance: BAMLANIVIMAB
     Dates: start: 20210115, end: 20210115
  2. BAMLANIVIMAB. [Suspect]
     Active Substance: BAMLANIVIMAB
     Indication: COVID-19

REACTIONS (6)
  - Tachypnoea [None]
  - Dyspnoea [None]
  - Wheezing [None]
  - Hypersensitivity [None]
  - Chronic obstructive pulmonary disease [None]
  - Bronchospasm [None]

NARRATIVE: CASE EVENT DATE: 20210115
